FAERS Safety Report 18745517 (Version 1)
Quarter: 2021Q1

REPORT INFORMATION
  Report Type: Spontaneous
  Country: US (occurrence: US)
  Receive Date: 20210114
  Receipt Date: 20210114
  Transmission Date: 20210419
  Serious: Yes (Death)
  Sender: FDA-Public Use
  Company Number: None

PATIENT
  Age: 78 Year
  Sex: Female

DRUGS (3)
  1. PREDNISONE 5MG [Suspect]
     Active Substance: PREDNISONE
  2. MYCOPHENOLATE 360MG [Suspect]
     Active Substance: MYCOPHENOLIC ACID
  3. TACROLIMUS 1MG [Suspect]
     Active Substance: TACROLIMUS

REACTIONS (1)
  - Death [None]

NARRATIVE: CASE EVENT DATE: 20210114
